FAERS Safety Report 5403713-8 (Version None)
Quarter: 2007Q3

REPORT INFORMATION
  Report Type: 
  Country: None (occurrence: None)
  Receive Date: 20070802
  Receipt Date: 20070723
  Transmission Date: 20080115
  Serious: Yes (Hospitalization)
  Sender: FDA-Public Use
  Company Number: US-JNJFOC-20070705312

PATIENT
  Sex: Female
  Weight: 95.26 kg

DRUGS (13)
  1. DURAGESIC-100 [Suspect]
     Indication: PAIN
     Route: 062
  2. DAYPRO [Concomitant]
     Route: 048
  3. HORMONE PILL [Concomitant]
     Route: 048
  4. WATER PILL [Concomitant]
     Route: 048
  5. LORCET-HD [Concomitant]
     Route: 065
  6. VALIUM [Concomitant]
     Dosage: AT BEDTIME
     Route: 065
  7. ASPIRIN [Concomitant]
     Route: 048
  8. VYTORIN [Concomitant]
     Route: 065
  9. NEXIUM [Concomitant]
     Indication: GASTROINTESTINAL DISORDER
     Route: 065
  10. BELLADONNA [Concomitant]
     Indication: GASTROINTESTINAL DISORDER
     Route: 065
  11. POTASSIUM CHLORIDE [Concomitant]
     Route: 065
  12. ANTIBIOTICS [Concomitant]
     Route: 065
  13. REQUIP [Concomitant]
     Route: 065

REACTIONS (11)
  - DYSPNOEA [None]
  - GOITRE [None]
  - HOT FLUSH [None]
  - MYOCARDIAL INFARCTION [None]
  - NERVE INJURY [None]
  - OEDEMA PERIPHERAL [None]
  - PAIN [None]
  - PERIPHERAL ARTERIAL OCCLUSIVE DISEASE [None]
  - RESTLESSNESS [None]
  - WEIGHT INCREASED [None]
  - WRONG TECHNIQUE IN DRUG USAGE PROCESS [None]
